FAERS Safety Report 6690361-5 (Version None)
Quarter: 2010Q2

REPORT INFORMATION
  Report Type: 
  Country: None (occurrence: None)
  Receive Date: 20100421
  Receipt Date: 20100409
  Transmission Date: 20101027
  Serious: Yes (Death, Hospitalization)
  Sender: FDA-Public Use
  Company Number: US-JNJCH-2009031662

PATIENT
  Age: 19 Year
  Sex: Female

DRUGS (1)
  1. ASPIRIN [Suspect]
     Indication: DRUG USE FOR UNKNOWN INDICATION
     Dosage: TEXT:FIVE 100-TABLETS BOTTLES UNSPECIFIED
     Route: 048

REACTIONS (1)
  - THERAPEUTIC AGENT TOXICITY [None]
